FAERS Safety Report 9890953 (Version 1)
Quarter: 2014Q1

REPORT INFORMATION
  Report Type: Spontaneous
  Country: US (occurrence: None)
  Receive Date: 20140210
  Receipt Date: 20140210
  Transmission Date: 20141002
  Serious: Yes (Disabling)
  Sender: FDA-Public Use
  Company Number: None

PATIENT
  Age: 67 Year
  Sex: Male
  Weight: 66.23 kg

DRUGS (8)
  1. PRIMIDONE [Suspect]
     Indication: PARKINSON^S DISEASE
     Dosage: 1 PILL
     Route: 048
     Dates: start: 20140123
  2. PRIMIDONE 50 MG [Concomitant]
  3. AZILACT 1 MG [Concomitant]
  4. METFORMIN [Concomitant]
  5. PRAVASTATIN 20 MG [Concomitant]
  6. B-12 [Concomitant]
  7. FISH OIL [Concomitant]
  8. 1-A-DAY MENS 50+ [Concomitant]

REACTIONS (5)
  - Vertigo [None]
  - Dizziness [None]
  - Gait disturbance [None]
  - Nausea [None]
  - Influenza [None]
